FAERS Safety Report 16759070 (Version 1)
Quarter: 2019Q3

REPORT INFORMATION
  Report Type: Spontaneous
  Country: CN (occurrence: CN)
  Receive Date: 20190830
  Receipt Date: 20190830
  Transmission Date: 20191005
  Serious: Yes (Other)
  Sender: FDA-Public Use
  Company Number: PHHY2019CN200307

PATIENT
  Age: 78 Year
  Sex: Female

DRUGS (1)
  1. ENTRESTO [Suspect]
     Active Substance: SACUBITRIL\VALSARTAN
     Indication: CARDIAC FAILURE ACUTE
     Dosage: 25 MG, BID
     Route: 048

REACTIONS (14)
  - Product use in unapproved indication [Unknown]
  - Blood potassium decreased [Unknown]
  - Blood calcium increased [Unknown]
  - Globulins increased [Unknown]
  - Glomerular filtration rate decreased [Recovering/Resolving]
  - Blood sodium decreased [Recovered/Resolved]
  - Blood phosphorus increased [Recovered/Resolved]
  - Wrong technique in product usage process [Unknown]
  - Blood urea increased [Unknown]
  - Carbon dioxide increased [Recovered/Resolved]
  - Renal impairment [Recovering/Resolving]
  - Blood creatinine increased [Unknown]
  - Underdose [Unknown]
  - Blood glucose decreased [Recovered/Resolved]

NARRATIVE: CASE EVENT DATE: 20190625
